FAERS Safety Report 9562595 (Version 1)
Quarter: 2013Q3

REPORT INFORMATION
  Report Type: Spontaneous
  Country: US (occurrence: None)
  Receive Date: 20130926
  Receipt Date: 20130926
  Transmission Date: 20140515
  Serious: Yes (Life-Threatening, Hospitalization)
  Sender: FDA-Public Use
  Company Number: None

PATIENT
  Age: 22 Year
  Sex: Male
  Weight: 92.53 kg

DRUGS (4)
  1. TRAMADOL [Suspect]
     Indication: ARTHRALGIA
     Dosage: 1 TABLET
     Route: 048
     Dates: start: 20130521, end: 20130910
  2. PROPRANOLOL [Concomitant]
  3. ALPRAZOLAM [Concomitant]
  4. LISINOPRIL [Concomitant]

REACTIONS (2)
  - Grand mal convulsion [None]
  - Joint dislocation [None]
